FAERS Safety Report 6930912-6 (Version None)
Quarter: 2010Q3

REPORT INFORMATION
  Report Type: 
  Country: None (occurrence: None)
  Receive Date: 20100818
  Receipt Date: 20091008
  Transmission Date: 20110219
  Serious: Yes (Hospitalization)
  Sender: FDA-Public Use
  Company Number: US-BRISTOL-MYERS SQUIBB COMPANY-14811251

PATIENT
  Age: 35 Year
  Sex: Male
  Weight: 95 kg

DRUGS (6)
  1. BLEOMYCIN SULFATE [Suspect]
     Indication: HODGKIN'S DISEASE
     Dosage: RECEIVED 3 CYCLES.
     Dates: start: 20090625
  2. ABVD [Concomitant]
  3. DOXORUBICIN HCL [Concomitant]
  4. DACARBAZINE [Concomitant]
  5. VINBLASTINE SULFATE [Concomitant]
  6. NEULASTA [Concomitant]

REACTIONS (1)
  - PNEUMONITIS [None]
